FAERS Safety Report 24030160 (Version 1)
Quarter: 2024Q2

REPORT INFORMATION
  Report Type: Spontaneous
  Country: US (occurrence: None)
  Receive Date: 20240628
  Receipt Date: 20240628
  Transmission Date: 20240716
  Serious: Yes (Hospitalization)
  Sender: FDA-Public Use
  Company Number: None

PATIENT
  Age: 68 Year
  Sex: Female

DRUGS (4)
  1. AMBRISENTAN [Suspect]
     Active Substance: AMBRISENTAN
     Indication: HIV infection
     Dosage: FREQ: TAKE 1 TABLET BY MOUTH DAILY.
     Route: 048
     Dates: start: 20211229
  2. AMBRISENTAN [Concomitant]
     Active Substance: AMBRISENTAN
  3. LETAIRIS [Concomitant]
     Active Substance: AMBRISENTAN
  4. METFORMIN [Concomitant]

REACTIONS (1)
  - Hospitalisation [None]

NARRATIVE: CASE EVENT DATE: 20240621
